FAERS Safety Report 20511363 (Version 2)
Quarter: 2022Q1

REPORT INFORMATION
  Report Type: Spontaneous
  Country: AR (occurrence: AR)
  Receive Date: 20220224
  Receipt Date: 20220311
  Transmission Date: 20220423
  Serious: Yes (Life-Threatening, Hospitalization, Other)
  Sender: FDA-Public Use
  Company Number: AR-LUPIN PHARMACEUTICALS INC.-2022-02333

PATIENT
  Age: 14 Year
  Sex: Female

DRUGS (1)
  1. AMLODIPINE [Suspect]
     Active Substance: AMLODIPINE BESYLATE
     Indication: Product used for unknown indication
     Dosage: 30 DOSAGE FORM, SINGLE, SHE HAD INGESTED 30 IMMEDIATE-RELEASE TABLETS OF AMLODIPINE 10MG (300MG)
     Route: 048

REACTIONS (4)
  - Haemodynamic instability [Recovering/Resolving]
  - Acute pulmonary oedema [Recovering/Resolving]
  - Intentional overdose [Unknown]
  - Suicide attempt [Unknown]
